FAERS Safety Report 4578564-7 (Version None)
Quarter: 2005Q1

REPORT INFORMATION
  Report Type: 
  Country: None (occurrence: None)
  Receive Date: 20050207
  Receipt Date: 20050207
  Transmission Date: 20050727
  Serious: Yes (Other)
  Sender: FDA-Public Use
  Company Number: None

PATIENT
  Age: 73 Year
  Sex: Female
  Weight: 64.8644 kg

DRUGS (2)
  1. DEPO-MEDROL [Suspect]
     Indication: RHEUMATOID ARTHRITIS
     Dosage: 40MG - WRIST
     Dates: start: 20050203
  2. LIDOCAINE 1% [Suspect]
     Indication: RHEUMATOID ARTHRITIS
     Dates: start: 20050203

REACTIONS (4)
  - ERYTHEMA [None]
  - INJECTION SITE JOINT REDNESS [None]
  - INJECTION SITE JOINT SWELLING [None]
  - PRURITUS [None]
